FAERS Safety Report 22532018 (Version 1)
Quarter: 2023Q2

REPORT INFORMATION
  Report Type: Spontaneous
  Country: US (occurrence: US)
  Receive Date: 20230607
  Receipt Date: 20230607
  Transmission Date: 20230721
  Serious: Yes (Other)
  Sender: FDA-Public Use
  Company Number: US-ACERUSPHRM-2023-US-000177

PATIENT
  Age: 31 Year
  Sex: 0

DRUGS (1)
  1. TESTOSTERONE [Suspect]
     Active Substance: TESTOSTERONE
     Indication: Gender reassignment therapy

REACTIONS (2)
  - Coronary artery dissection [Unknown]
  - Product use issue [Unknown]
